FAERS Safety Report 21011404 (Version 1)
Quarter: 2022Q2

REPORT INFORMATION
  Report Type: Report from Study
  Country: US (occurrence: None)
  Receive Date: 20220627
  Receipt Date: 20220627
  Transmission Date: 20220721
  Serious: Yes (Death)
  Sender: FDA-Public Use
  Company Number: 2022A235698

PATIENT
  Sex: Female

DRUGS (2)
  1. IMFINZI [Suspect]
     Active Substance: DURVALUMAB
     Dosage: INFUSE 10MG/KG INTRAVENOUSLY OVER 60 MINUTES EVERY TWO WEEKS
     Route: 042
  2. IMFINZI [Suspect]
     Active Substance: DURVALUMAB
     Dosage: INFUSE 10MG/KG INTRAVENOUSLY OVER 60 MINUTES EVERY TWO WEEKS
     Route: 042

REACTIONS (1)
  - Death [Fatal]
